FAERS Safety Report 16940642 (Version 1)
Quarter: 2019Q4

REPORT INFORMATION
  Report Type: Spontaneous
  Country: US (occurrence: US)
  Receive Date: 20191021
  Receipt Date: 20191021
  Transmission Date: 20200122
  Serious: Yes (Death, Other)
  Sender: FDA-Public Use
  Company Number: US-AMNEAL PHARMACEUTICALS-2019-IPXL-00803

PATIENT
  Sex: Male
  Weight: 63 kg

DRUGS (1)
  1. RYTARY [Suspect]
     Active Substance: CARBIDOPA\LEVODOPA
     Indication: PARKINSON^S DISEASE
     Dosage: 1 DOSAGE FORM, TID
     Route: 048

REACTIONS (5)
  - Nervousness [Unknown]
  - Parkinson^s disease [Fatal]
  - Claustrophobia [Unknown]
  - Dementia Alzheimer^s type [Fatal]
  - Abdominal discomfort [Unknown]
